FAERS Safety Report 9584646 (Version 1)
Quarter: 2013Q4

REPORT INFORMATION
  Report Type: Spontaneous
  Country: US (occurrence: US)
  Receive Date: 20131002
  Receipt Date: 20131002
  Transmission Date: 20140711
  Serious: No
  Sender: FDA-Public Use
  Company Number: US-AMGEN-USASP2013054523

PATIENT
  Age: 59 Year
  Sex: Female

DRUGS (10)
  1. ENBREL [Suspect]
     Indication: PSORIATIC ARTHROPATHY
     Dosage: 50 MG, QWK
     Route: 058
  2. SANCTURA [Concomitant]
     Dosage: 60 MG, UNK
  3. PREMARIN [Concomitant]
     Dosage: 0.625 MG, UNK
  4. ALENDRONATE [Concomitant]
     Dosage: 10 MG, UNK
  5. ADVAIR [Concomitant]
     Dosage: UNK,100/50
  6. VALTREX [Concomitant]
     Dosage: 500 MG, UNK
  7. SPIRULINA                          /01514001/ [Concomitant]
     Dosage: 500 MG, UNK
  8. CALCIUM [Concomitant]
     Dosage: 500 UNK, UNK
  9. BIOTIN [Concomitant]
     Dosage: 5000 UNK, UNK
  10. MAGNESIUM [Concomitant]
     Dosage: 400 MG, UNK

REACTIONS (2)
  - Dizziness [Unknown]
  - Hyperhidrosis [Unknown]
